FAERS Safety Report 7783329-9 (Version None)
Quarter: 2011Q3

REPORT INFORMATION
  Report Type: 
  Country: None (occurrence: None)
  Receive Date: 20110928
  Receipt Date: 20110914
  Transmission Date: 20111222
  Serious: Yes (Hospitalization, Other)
  Sender: FDA-Public Use
  Company Number: US-BAYER-2011-022532

PATIENT
  Age: 23 Year
  Sex: Female
  Weight: 63.946 kg

DRUGS (3)
  1. YASMIN [Suspect]
     Indication: HIRSUTISM
     Dosage: UNK
     Dates: start: 20040501
  2. YASMIN [Suspect]
     Indication: CONTRACEPTION
     Dosage: UNK
     Dates: start: 20011101, end: 20030101
  3. YASMIN [Suspect]
     Dosage: UNK
     Dates: start: 20050301, end: 20070304

REACTIONS (11)
  - CHEST PAIN [None]
  - PAIN [None]
  - PULMONARY EMBOLISM [None]
  - FATIGUE [None]
  - ALOPECIA [None]
  - DEPRESSION [None]
  - DYSPNOEA [None]
  - INSOMNIA [None]
  - BURNOUT SYNDROME [None]
  - INJURY [None]
  - HAIR TEXTURE ABNORMAL [None]
